FAERS Safety Report 5822715-0 (Version None)
Quarter: 2008Q3

REPORT INFORMATION
  Report Type: 
  Country: None (occurrence: None)
  Receive Date: 20080725
  Receipt Date: 20071107
  Transmission Date: 20090109
  Serious: No
  Sender: FDA-Public Use
  Company Number: US-AMGEN-KDL251596

PATIENT
  Sex: Male

DRUGS (12)
  1. PROCRIT [Suspect]
     Indication: RENAL FAILURE CHRONIC
     Dates: start: 20040101
  2. MOMETASONE FUROATE [Suspect]
  3. NASAL PREPARATIONS [Suspect]
  4. MULTIVITAMIN [Concomitant]
  5. ASPIRIN [Concomitant]
  6. SINGULAIR [Concomitant]
  7. TERAZOSIN HCL [Concomitant]
  8. HYDROCHLOROTHIAZIDE [Concomitant]
  9. IRON [Concomitant]
  10. SIMVASTATIN [Concomitant]
  11. FORADIL [Concomitant]
  12. FLUNISOLIDE [Concomitant]

REACTIONS (3)
  - INJECTION SITE ERYTHEMA [None]
  - INJECTION SITE PRURITUS [None]
  - INJECTION SITE SWELLING [None]
